FAERS Safety Report 14017304 (Version 1)
Quarter: 2017Q3

REPORT INFORMATION
  Report Type: Spontaneous
  Country: JP (occurrence: JP)
  Receive Date: 20170927
  Receipt Date: 20170927
  Transmission Date: 20171128
  Serious: Yes (Hospitalization, Other)
  Sender: FDA-Public Use
  Company Number: JP-GLAXOSMITHKLINE-JP2017JPN096969

PATIENT
  Age: 65 Year
  Sex: Male
  Weight: 86 kg

DRUGS (4)
  1. LAMICTAL [Suspect]
     Active Substance: LAMOTRIGINE
     Indication: BIPOLAR DISORDER
     Dosage: 25 MG, QOD
     Route: 048
     Dates: start: 20170523, end: 20170605
  2. ALLOPURINOL. [Concomitant]
     Active Substance: ALLOPURINOL
     Indication: HYPERURICAEMIA
     Dosage: 100 MG, QD
     Dates: start: 2007
  3. LAMICTAL [Suspect]
     Active Substance: LAMOTRIGINE
     Dosage: 25 MG, QD
     Route: 048
     Dates: start: 20170606, end: 20170621
  4. SODIUM VALPROATE SR [Concomitant]
     Indication: BIPOLAR I DISORDER
     Dosage: 200 MG, BID
     Dates: start: 2014

REACTIONS (13)
  - Conjunctivitis [Unknown]
  - Epidermal necrosis [Unknown]
  - Blister [Unknown]
  - Skin erosion [Unknown]
  - Lip erosion [Unknown]
  - Erythema [Unknown]
  - Stevens-Johnson syndrome [Unknown]
  - Ocular hyperaemia [Unknown]
  - Oral mucosa erosion [Unknown]
  - Pyrexia [Unknown]
  - Rash [Unknown]
  - Erythema of eyelid [Unknown]
  - Scab [Unknown]

NARRATIVE: CASE EVENT DATE: 20170619
